FAERS Safety Report 8427887-X (Version None)
Quarter: 2012Q2

REPORT INFORMATION
  Report Type: 
  Country: None (occurrence: None)
  Receive Date: 20120611
  Receipt Date: 20120601
  Transmission Date: 20120825
  Serious: Yes (Hospitalization)
  Sender: FDA-Public Use
  Company Number: US-ASTRAZENECA-2012SE36978

PATIENT
  Age: 65 Year
  Sex: Female
  Weight: 90.7 kg

DRUGS (14)
  1. NEXIUM [Suspect]
     Indication: GASTRITIS
     Route: 048
  2. LISINOPRIL [Suspect]
     Indication: CARDIAC DISORDER
     Route: 048
  3. LORATADINE [Concomitant]
     Indication: HYPERSENSITIVITY
  4. NEXIUM [Suspect]
     Route: 048
  5. LISINOPRIL [Suspect]
     Indication: BLOOD PRESSURE ABNORMAL
     Route: 048
  6. LIPITOR [Concomitant]
     Indication: BLOOD PRESSURE ABNORMAL
  7. LIPITOR [Concomitant]
     Indication: CARDIAC DISORDER
  8. MOBIC [Concomitant]
     Indication: ARTHRITIS
  9. SINGULAIR [Concomitant]
     Indication: DYSPNOEA
     Route: 055
  10. NEXIUM [Suspect]
     Indication: GASTROOESOPHAGEAL REFLUX DISEASE
     Route: 048
  11. NEXIUM [Suspect]
     Route: 048
  12. NEXIUM [Suspect]
     Route: 048
  13. NEXIUM [Suspect]
     Route: 048
  14. OTHER DRUGS [Concomitant]

REACTIONS (7)
  - OEDEMA PERIPHERAL [None]
  - IRRITABILITY [None]
  - DYSPHONIA [None]
  - JOINT SWELLING [None]
  - OFF LABEL USE [None]
  - ABDOMINAL PAIN UPPER [None]
  - DYSPNOEA [None]
